FAERS Safety Report 24880120 (Version 2)
Quarter: 2025Q1

REPORT INFORMATION
  Report Type: Spontaneous
  Country: JP (occurrence: JP)
  Receive Date: 20250123
  Receipt Date: 20250207
  Transmission Date: 20250409
  Serious: Yes (Death, Other)
  Sender: LUNDBECK
  Company Number: JP-SA-2025SA018616

PATIENT

DRUGS (2)
  1. SABRIL [Suspect]
     Active Substance: VIGABATRIN
     Indication: Infantile spasms
     Dosage: ACTUAL DOSE: 340 MG/DAY, BID
     Route: 048
     Dates: start: 20210823, end: 20211126
  2. SABRIL [Suspect]
     Active Substance: VIGABATRIN
     Dosage: ACTUAL DOSE: 170 MG/DAY, BID
     Route: 048
     Dates: start: 20211204, end: 20220116

REACTIONS (1)
  - Death [Fatal]

NARRATIVE: CASE EVENT DATE: 20220117
